FAERS Safety Report 11734292 (Version 1)
Quarter: 2015Q4

REPORT INFORMATION
  Report Type: Spontaneous
  Country: US (occurrence: US)
  Receive Date: 20151113
  Receipt Date: 20151113
  Transmission Date: 20160304
  Serious: Yes (Death)
  Sender: FDA-Public Use
  Company Number: US-LUNDBECK-DKLU2006355

PATIENT
  Age: 52 Year
  Sex: Male

DRUGS (4)
  1. MAPAP [Concomitant]
     Active Substance: ACETAMINOPHEN
     Indication: PRODUCT USED FOR UNKNOWN INDICATION
     Route: 065
  2. NORTHERA [Suspect]
     Active Substance: DROXIDOPA
     Indication: HYPOTENSION
     Route: 048
     Dates: start: 20150918
  3. ALPRAZOLAM. [Concomitant]
     Active Substance: ALPRAZOLAM
     Indication: PRODUCT USED FOR UNKNOWN INDICATION
     Route: 065
  4. ATROPINE SULFATE. [Concomitant]
     Active Substance: ATROPINE SULFATE
     Indication: PRODUCT USED FOR UNKNOWN INDICATION
     Route: 065

REACTIONS (1)
  - Death [Fatal]

NARRATIVE: CASE EVENT DATE: 20151103
